FAERS Safety Report 12593205 (Version 1)
Quarter: 2016Q3

REPORT INFORMATION
  Report Type: Spontaneous
  Country: US (occurrence: US)
  Receive Date: 20160726
  Receipt Date: 20160726
  Transmission Date: 20161109
  Serious: No
  Sender: FDA-Public Use
  Company Number: US-ABBVIE-16P-163-1617167-00

PATIENT
  Age: 61 Year
  Sex: Female

DRUGS (1)
  1. SYNTHROID [Suspect]
     Active Substance: LEVOTHYROXINE SODIUM
     Indication: PRODUCT USED FOR UNKNOWN INDICATION
     Route: 048
     Dates: start: 20160322, end: 20160414

REACTIONS (4)
  - Depression [Recovering/Resolving]
  - Diarrhoea [Recovered/Resolved]
  - Nausea [Recovered/Resolved]
  - Dizziness [Recovering/Resolving]

NARRATIVE: CASE EVENT DATE: 20160329
